FAERS Safety Report 9630732 (Version 1)
Quarter: 2013Q4

REPORT INFORMATION
  Report Type: Spontaneous
  Country: US (occurrence: None)
  Receive Date: 20131016
  Receipt Date: 20131016
  Transmission Date: 20140711
  Serious: Yes (Other)
  Sender: FDA-Public Use
  Company Number: None

PATIENT
  Sex: Female

DRUGS (1)
  1. HIBICLENS [Suspect]
     Indication: EYE IRRIGATION
     Dosage: CLEANSING OF THE EYE
     Route: 061

REACTIONS (2)
  - Eye pain [None]
  - Off label use [None]
